FAERS Safety Report 5633859-0 (Version None)
Quarter: 2008Q1

REPORT INFORMATION
  Report Type: 
  Country: None (occurrence: None)
  Receive Date: 20080221
  Receipt Date: 20080208
  Transmission Date: 20080703
  Serious: Yes (Other)
  Sender: FDA-Public Use
  Company Number: DE-BOEHRINGER INGELHEIM GMBH, GERMANY-2008-DE-00489DE

PATIENT
  Sex: Male
  Weight: 80 kg

DRUGS (4)
  1. PRAMIPEXOLE DIHYDROCHLORIDE [Suspect]
     Indication: RESTLESS LEGS SYNDROME
     Dates: start: 20061017
  2. PRAMIPEXOLE DIHYDROCHLORIDE [Suspect]
     Route: 048
     Dates: end: 20071030
  3. ADARTREL [Concomitant]
  4. ALFUZOSIN HCL [Concomitant]
     Indication: BENIGN PROSTATIC HYPERPLASIA

REACTIONS (13)
  - BLOOD PRESSURE DECREASED [None]
  - BLOOD PRESSURE FLUCTUATION [None]
  - CONDITION AGGRAVATED [None]
  - DIZZINESS [None]
  - DYSKINESIA [None]
  - GAIT DISTURBANCE [None]
  - HALLUCINATION [None]
  - INSOMNIA [None]
  - LIBIDO DECREASED [None]
  - PARALYSIS [None]
  - TREMOR [None]
  - VISUAL DISTURBANCE [None]
  - WITHDRAWAL SYNDROME [None]
